FAERS Safety Report 8144448-0 (Version None)
Quarter: 2012Q1

REPORT INFORMATION
  Report Type: 
  Country: None (occurrence: None)
  Receive Date: 20120217
  Receipt Date: 20120207
  Transmission Date: 20120608
  Serious: Yes (Other)
  Sender: FDA-Public Use
  Company Number: CA-UCBSA-051143

PATIENT
  Age: 55 Year
  Sex: Female
  Weight: 83 kg

DRUGS (12)
  1. FOLIC ACID [Concomitant]
     Dosage: UNKNOWN DOSE
  2. HRT [Concomitant]
     Dosage: UNKNOWN DOSE
  3. RABEPRAZOLE SODIUM [Concomitant]
     Dosage: UNKNOWN DOSE
  4. CIMZIA [Suspect]
     Indication: RHEUMATOID ARTHRITIS
     Route: 058
     Dates: start: 20110224
  5. METHOTREXATE [Concomitant]
     Indication: RHEUMATOID ARTHRITIS
     Route: 048
     Dates: start: 19950101
  6. PLAQUENIL [Concomitant]
     Indication: RHEUMATOID ARTHRITIS
     Route: 048
     Dates: start: 19950101
  7. TRAMADOL HCL [Concomitant]
     Dosage: UNKNOWN DOSE
  8. PREDNISONE [Concomitant]
     Indication: RHEUMATOID ARTHRITIS
     Dosage: ROUTE : IV
     Route: 042
     Dates: start: 19950101
  9. NAPROSYN [Concomitant]
     Dosage: UNKNOWN DOSE
  10. ZOPICLONE [Concomitant]
     Dosage: UNKNOWN DOSE
  11. LEVOTHYROXINE SODIUM [Concomitant]
     Dosage: UNKNOWN DOSE
  12. ACETAMINOPHEN [Concomitant]
     Dosage: UNKNOWN DOSE

REACTIONS (1)
  - SMEAR CERVIX ABNORMAL [None]
